FAERS Safety Report 9269070 (Version 1)
Quarter: 2013Q2

REPORT INFORMATION
  Report Type: Spontaneous
  Country: US (occurrence: US)
  Receive Date: 20130503
  Receipt Date: 20130503
  Transmission Date: 20140414
  Serious: No
  Sender: FDA-Public Use
  Company Number: US-009507513-1305USA000636

PATIENT
  Age: 20 Year
  Sex: Female

DRUGS (1)
  1. IMPLANON [Suspect]
     Indication: CONTRACEPTION
     Dosage: ONCE/ THREE YEARS
     Route: 059
     Dates: start: 201303

REACTIONS (2)
  - Implant site infection [Recovered/Resolved]
  - Implant site effusion [Recovered/Resolved]
